FAERS Safety Report 22182000 (Version 3)
Quarter: 2023Q2

REPORT INFORMATION
  Report Type: Spontaneous
  Country: US (occurrence: US)
  Receive Date: 20230406
  Receipt Date: 20230522
  Transmission Date: 20230721
  Serious: No
  Sender: FDA-Public Use
  Company Number: US-SANOFI-01557607

PATIENT
  Age: 66 Year
  Sex: Female
  Weight: 93.4 kg

DRUGS (1)
  1. DUPIXENT [Suspect]
     Active Substance: DUPILUMAB
     Indication: Neurodermatitis
     Dosage: 300 MG, QOW
     Route: 030
     Dates: start: 20230117, end: 20230222

REACTIONS (5)
  - Injection site pain [Unknown]
  - Heart rate increased [Unknown]
  - Diarrhoea [Unknown]
  - Head discomfort [Unknown]
  - Incorrect route of product administration [Unknown]
